FAERS Safety Report 10280410 (Version 1)
Quarter: 2014Q3

REPORT INFORMATION
  Report Type: Spontaneous
  Country: GB (occurrence: None)
  Receive Date: 20140701
  Receipt Date: 20140701
  Transmission Date: 20150326
  Serious: No
  Sender: FDA-Public Use
  Company Number: None

PATIENT
  Age: 48 Year
  Sex: Female
  Weight: 55 kg

DRUGS (2)
  1. FLUOXETINE [Suspect]
     Active Substance: FLUOXETINE\FLUOXETINE HYDROCHLORIDE
     Indication: HORMONE REPLACEMENT THERAPY
     Dosage: 2 PILLS?AT BEDTIME?TAKEN BY MOUTH
     Route: 048
  2. FLUOXETINE [Suspect]
     Active Substance: FLUOXETINE\FLUOXETINE HYDROCHLORIDE
     Indication: DEPRESSION
     Dosage: 2 PILLS?AT BEDTIME?TAKEN BY MOUTH
     Route: 048

REACTIONS (8)
  - Gastrooesophageal reflux disease [None]
  - Insomnia [None]
  - Vomiting [None]
  - Product taste abnormal [None]
  - Flank pain [None]
  - Product quality issue [None]
  - Throat irritation [None]
  - Burning sensation [None]

NARRATIVE: CASE EVENT DATE: 20140629
